FAERS Safety Report 8173029-8 (Version None)
Quarter: 2012Q1

REPORT INFORMATION
  Report Type: 
  Country: None (occurrence: None)
  Receive Date: 20120229
  Receipt Date: 20120214
  Transmission Date: 20120608
  Serious: No
  Sender: FDA-Public Use
  Company Number: US-JNJFOC-20120208110

PATIENT
  Sex: Female
  Weight: 62.6 kg

DRUGS (1)
  1. FENTANYL-100 [Suspect]
     Indication: PAIN
     Dosage: NDC 0781 7241 55
     Route: 062
     Dates: start: 20120101

REACTIONS (3)
  - DRUG DOSE OMISSION [None]
  - APPLICATION SITE RASH [None]
  - PRODUCT QUALITY ISSUE [None]
